FAERS Safety Report 25920324 (Version 3)
Quarter: 2025Q4

REPORT INFORMATION
  Report Type: Report from Study
  Country: US (occurrence: US)
  Receive Date: 20251014
  Receipt Date: 20251113
  Transmission Date: 20260117
  Serious: Yes (Hospitalization, Other)
  Sender: ABBVIE
  Company Number: US-ABBVIE-6498847

PATIENT
  Age: 26 Year
  Sex: Female
  Weight: 56.699 kg

DRUGS (5)
  1. SKYRIZI [Suspect]
     Active Substance: RISANKIZUMAB-RZAA
     Indication: Crohn^s disease
     Dosage: FORM STRENGTH: 360 MILLIGRAM
     Route: 058
     Dates: start: 202409
  2. SKYRIZI [Suspect]
     Active Substance: RISANKIZUMAB-RZAA
     Indication: Crohn^s disease
     Dosage: FORM STRENGTH: 600 MILLIGRAM
     Route: 042
     Dates: start: 20240819
  3. CRYSELLE [Concomitant]
     Active Substance: ETHINYL ESTRADIOL\NORGESTREL
     Indication: Product used for unknown indication
     Dosage: OCP DAILY
  4. Forvia [Concomitant]
     Indication: Crohn^s disease
     Dosage: FOR CROHN^S MANAGEMENT
  5. VITAMIN D3 [Concomitant]
     Active Substance: CHOLECALCIFEROL
     Indication: Crohn^s disease
     Dosage: 2000IU FOR CROHN^S MANAGEMENT

REACTIONS (6)
  - Proctocolectomy [Not Recovered/Not Resolved]
  - Muscle flap operation [Recovered/Resolved]
  - Suture rupture [Unknown]
  - Impaired healing [Recovering/Resolving]
  - Perineal injury [Recovering/Resolving]
  - Wound dehiscence [Unknown]

NARRATIVE: CASE EVENT DATE: 20241230
